FAERS Safety Report 11131067 (Version 1)
Quarter: 2015Q2

REPORT INFORMATION
  Report Type: Spontaneous
  Country: IT (occurrence: IT)
  Receive Date: 20150522
  Receipt Date: 20150522
  Transmission Date: 20150821
  Serious: Yes (Hospitalization, Other)
  Sender: FDA-Public Use
  Company Number: IT-BRISTOL-MYERS SQUIBB COMPANY-21170469

PATIENT
  Age: 24 Year
  Sex: Male

DRUGS (36)
  1. OLANZAPINE. [Concomitant]
     Active Substance: OLANZAPINE
     Indication: ANXIETY
     Dosage: 10 MG, QD
     Route: 065
  2. VALPROIC ACID. [Concomitant]
     Active Substance: VALPROIC ACID
     Indication: SOCIAL AVOIDANT BEHAVIOUR
  3. VALPROIC ACID. [Concomitant]
     Active Substance: VALPROIC ACID
     Indication: IDEAS OF REFERENCE
  4. DIAZEPAM. [Concomitant]
     Active Substance: DIAZEPAM
     Indication: IDEAS OF REFERENCE
  5. DIAZEPAM. [Concomitant]
     Active Substance: DIAZEPAM
     Indication: BLUNTED AFFECT
  6. DELORAZEPAM [Interacting]
     Active Substance: DELORAZEPAM
     Indication: INSOMNIA
  7. DELORAZEPAM [Interacting]
     Active Substance: DELORAZEPAM
     Indication: IDEAS OF REFERENCE
  8. OLANZAPINE. [Concomitant]
     Active Substance: OLANZAPINE
     Indication: INSOMNIA
  9. VALPROIC ACID. [Concomitant]
     Active Substance: VALPROIC ACID
     Indication: BLUNTED AFFECT
  10. DELORAZEPAM [Interacting]
     Active Substance: DELORAZEPAM
     Indication: SOCIAL AVOIDANT BEHAVIOUR
  11. OLANZAPINE. [Concomitant]
     Active Substance: OLANZAPINE
     Indication: BLUNTED AFFECT
  12. VALPROIC ACID. [Concomitant]
     Active Substance: VALPROIC ACID
     Indication: INSOMNIA
  13. ABILIFY [Interacting]
     Active Substance: ARIPIPRAZOLE
     Indication: SOCIAL AVOIDANT BEHAVIOUR
  14. DELORAZEPAM [Interacting]
     Active Substance: DELORAZEPAM
     Indication: AGITATION
  15. CLONAZEPAM. [Concomitant]
     Active Substance: CLONAZEPAM
     Indication: SOCIAL AVOIDANT BEHAVIOUR
  16. DIAZEPAM. [Concomitant]
     Active Substance: DIAZEPAM
     Indication: AGITATION
  17. DIAZEPAM. [Concomitant]
     Active Substance: DIAZEPAM
     Indication: SOCIAL AVOIDANT BEHAVIOUR
  18. ABILIFY [Suspect]
     Active Substance: ARIPIPRAZOLE
     Indication: ANXIETY
     Dosage: 20 MG, QD
     Route: 048
  19. ABILIFY [Interacting]
     Active Substance: ARIPIPRAZOLE
     Indication: BLUNTED AFFECT
  20. OLANZAPINE. [Concomitant]
     Active Substance: OLANZAPINE
     Indication: IDEAS OF REFERENCE
  21. CLONAZEPAM. [Concomitant]
     Active Substance: CLONAZEPAM
     Indication: BLUNTED AFFECT
  22. DIAZEPAM. [Concomitant]
     Active Substance: DIAZEPAM
     Indication: INSOMNIA
  23. DELORAZEPAM [Interacting]
     Active Substance: DELORAZEPAM
     Indication: BLUNTED AFFECT
  24. OLANZAPINE. [Concomitant]
     Active Substance: OLANZAPINE
     Indication: SOCIAL AVOIDANT BEHAVIOUR
  25. CLONAZEPAM. [Concomitant]
     Active Substance: CLONAZEPAM
     Indication: AGITATION
  26. ABILIFY [Interacting]
     Active Substance: ARIPIPRAZOLE
     Indication: AGITATION
  27. ABILIFY [Interacting]
     Active Substance: ARIPIPRAZOLE
     Indication: INSOMNIA
  28. VALPROIC ACID. [Concomitant]
     Active Substance: VALPROIC ACID
     Indication: ANXIETY
     Dosage: 600 MG, QD
     Route: 065
  29. CLONAZEPAM. [Concomitant]
     Active Substance: CLONAZEPAM
     Indication: IDEAS OF REFERENCE
  30. DIAZEPAM. [Concomitant]
     Active Substance: DIAZEPAM
     Indication: ANXIETY
     Dosage: 12 MG, QD
     Route: 065
  31. ABILIFY [Interacting]
     Active Substance: ARIPIPRAZOLE
     Indication: IDEAS OF REFERENCE
  32. DELORAZEPAM [Interacting]
     Active Substance: DELORAZEPAM
     Indication: ANXIETY
     Dosage: 2 MG, QD
     Route: 048
  33. OLANZAPINE. [Concomitant]
     Active Substance: OLANZAPINE
     Indication: AGITATION
  34. VALPROIC ACID. [Concomitant]
     Active Substance: VALPROIC ACID
     Indication: AGITATION
  35. CLONAZEPAM. [Concomitant]
     Active Substance: CLONAZEPAM
     Indication: ANXIETY
     Dosage: 2 MG, QD
     Route: 065
  36. CLONAZEPAM. [Concomitant]
     Active Substance: CLONAZEPAM
     Indication: INSOMNIA

REACTIONS (2)
  - Hiccups [Recovered/Resolved]
  - Drug interaction [Unknown]
